FAERS Safety Report 16006789 (Version 1)
Quarter: 2019Q1

REPORT INFORMATION
  Report Type: Spontaneous
  Country: AU (occurrence: AU)
  Receive Date: 20190226
  Receipt Date: 20190226
  Transmission Date: 20190418
  Serious: Yes (Hospitalization, Other)
  Sender: FDA-Public Use
  Company Number: AU-MYLANLABS-2019M1016337

PATIENT
  Age: 51 Year
  Sex: Male

DRUGS (8)
  1. SINEMET [Suspect]
     Active Substance: CARBIDOPA\LEVODOPA
     Indication: PARKINSON^S DISEASE
     Dosage: 3 HALF TABLETS, QD
  2. KINSON [Suspect]
     Active Substance: CARBIDOPA\LEVODOPA
     Dosage: 3 DOSAGE FORM, QD
  3. SINEMET [Suspect]
     Active Substance: CARBIDOPA\LEVODOPA
     Indication: PARKINSON^S DISEASE
     Dosage: UNK
  4. AZILECT [Concomitant]
     Active Substance: RASAGILINE MESYLATE
  5. INSULIN [Concomitant]
     Active Substance: INSULIN NOS
     Indication: TYPE 1 DIABETES MELLITUS
  6. SEROQUEL [Suspect]
     Active Substance: QUETIAPINE FUMARATE
     Indication: PSYCHOTIC DISORDER
     Dosage: 50 MILLIGRAM
  7. SEROQUEL [Suspect]
     Active Substance: QUETIAPINE FUMARATE
     Dosage: UNK
  8. KINSON [Suspect]
     Active Substance: CARBIDOPA\LEVODOPA
     Indication: DEMENTIA
     Dosage: UNK

REACTIONS (6)
  - Blood glucose increased [Unknown]
  - Hypotension [Unknown]
  - Nightmare [Not Recovered/Not Resolved]
  - Abnormal dreams [Unknown]
  - Psychotic disorder [Recovered/Resolved]
  - Blood glucose decreased [Unknown]
